FAERS Safety Report 6913095-8 (Version None)
Quarter: 2010Q3

REPORT INFORMATION
  Report Type: 
  Country: None (occurrence: None)
  Receive Date: 20100806
  Receipt Date: 20090717
  Transmission Date: 20110219
  Serious: Yes (Other)
  Sender: FDA-Public Use
  Company Number: US-PFIZER INC-2009223179

PATIENT
  Sex: Male
  Weight: 81.646 kg

DRUGS (17)
  1. VFEND [Suspect]
     Indication: ASPERGILLOSIS
     Dates: start: 20090101
  2. ZITHROMAX [Concomitant]
     Dosage: UNK
  3. ACICLOVIR [Concomitant]
     Dosage: UNK
  4. TRIAZOLAM [Concomitant]
     Dosage: UNK
  5. BACTRIM [Concomitant]
     Dosage: UNK
  6. MULTI-VITAMINS [Concomitant]
     Dosage: UNK
  7. PRILOSEC [Concomitant]
     Dosage: UNK
  8. RANITIDINE [Concomitant]
     Dosage: UNK
  9. MAGNESIUM OXIDE [Concomitant]
     Dosage: UNK
  10. ACETAMINOPHEN [Concomitant]
     Dosage: UNK
  11. CALCIUM CARBONATE/COLECALCIFEROL [Concomitant]
  12. LOPRESSOR [Concomitant]
  13. COUMADIN [Concomitant]
  14. OXYCODONE [Concomitant]
  15. CELLCEPT [Concomitant]
  16. PREDNISONE [Concomitant]
  17. PROGRAF [Concomitant]

REACTIONS (3)
  - ATAXIA [None]
  - FEELING ABNORMAL [None]
  - FEELING DRUNK [None]
